FAERS Safety Report 5719604-9 (Version None)
Quarter: 2008Q2

REPORT INFORMATION
  Report Type: 
  Country: None (occurrence: None)
  Receive Date: 20080428
  Receipt Date: 20080407
  Transmission Date: 20081010
  Serious: Yes (Hospitalization)
  Sender: FDA-Public Use
  Company Number: B0516259A

PATIENT
  Age: 4 Year
  Sex: Male

DRUGS (3)
  1. TOPOTECAN [Suspect]
     Indication: NEUROBLASTOMA
     Route: 042
     Dates: start: 20070308, end: 20070312
  2. VINCRISTINE [Suspect]
     Indication: NEUROBLASTOMA
     Route: 042
     Dates: start: 20070313, end: 20070314
  3. DOXORUBICIN HCL [Suspect]
     Indication: NEUROBLASTOMA
     Route: 042
     Dates: start: 20070313, end: 20070314

REACTIONS (8)
  - BLISTER [None]
  - COUGH [None]
  - DYSPHAGIA [None]
  - FEBRILE BONE MARROW APLASIA [None]
  - MUCOSAL INFLAMMATION [None]
  - NEUTROPENIA [None]
  - PETECHIAE [None]
  - THROMBOCYTOPENIA [None]
